FAERS Safety Report 10674647 (Version 1)
Quarter: 2014Q4

REPORT INFORMATION
  Report Type: Spontaneous
  Country: US (occurrence: None)
  Receive Date: 20141222
  Receipt Date: 20141222
  Transmission Date: 20150529
  Serious: Yes (Death)
  Sender: FDA-Public Use
  Company Number: INT_00555_2014

PATIENT

DRUGS (3)
  1. LY293111 [Suspect]
     Active Substance: ETALOCIB
     Indication: NON-SMALL CELL LUNG CANCER
  2. CISPLATIN. [Suspect]
     Active Substance: CISPLATIN
     Indication: NON-SMALL CELL LUNG CANCER
     Dosage: 1X/3 WEEKS, ON DAY 1, EVERY 21 DAYS
  3. GEMCITABINE [Suspect]
     Active Substance: GEMCITABINE\GEMCITABINE HYDROCHLORIDE
     Indication: NON-SMALL CELL LUNG CANCER
     Dosage: ON DAYS 1 AND 8

REACTIONS (1)
  - Pulmonary embolism [None]
